FAERS Safety Report 17448125 (Version 3)
Quarter: 2020Q4

REPORT INFORMATION
  Report Type: Report from Study
  Country: None (occurrence: CO)
  Receive Date: 20200222
  Receipt Date: 20201005
  Transmission Date: 20210113
  Serious: Yes (Other)
  Sender: FDA-Public Use
  Company Number: CO-ABBVIE-20K-036-3289465-00

PATIENT
  Sex: Male
  Weight: 62 kg

DRUGS (2)
  1. ZEMPLAR [Suspect]
     Active Substance: PARICALCITOL
     Indication: HYPERPARATHYROIDISM SECONDARY
     Dosage: POST DIALYSIS
     Route: 042
     Dates: start: 20140328
  2. ZEMPLAR [Suspect]
     Active Substance: PARICALCITOL
     Indication: CHRONIC KIDNEY DISEASE

REACTIONS (6)
  - Surgery [Recovering/Resolving]
  - Eye disorder [Recovering/Resolving]
  - Ocular discomfort [Recovering/Resolving]
  - Blindness [Recovering/Resolving]
  - Eye movement disorder [Unknown]
  - Diabetic blindness [Not Recovered/Not Resolved]

NARRATIVE: CASE EVENT DATE: 2017
